FAERS Safety Report 15106745 (Version 8)
Quarter: 2020Q4

REPORT INFORMATION
  Report Type: Report from Study
  Country: US (occurrence: US)
  Receive Date: 20180704
  Receipt Date: 20201008
  Transmission Date: 20210113
  Serious: Yes (Other)
  Sender: FDA-Public Use
  Company Number: US-SA-2018SA178310

PATIENT

DRUGS (1)
  1. TERIFLUNOMIDE. [Suspect]
     Active Substance: TERIFLUNOMIDE
     Indication: MULTIPLE SCLEROSIS
     Dosage: 14 MG, QD
     Route: 048
     Dates: start: 20180330

REACTIONS (5)
  - Fatigue [Not Recovered/Not Resolved]
  - Paraesthesia [Not Recovered/Not Resolved]
  - Alopecia [Recovering/Resolving]
  - Breast cancer [Not Recovered/Not Resolved]
  - Gait disturbance [Not Recovered/Not Resolved]

NARRATIVE: CASE EVENT DATE: 20200917
